FAERS Safety Report 25286345 (Version 1)
Quarter: 2025Q2

REPORT INFORMATION
  Report Type: Spontaneous
  Country: US (occurrence: US)
  Receive Date: 20250509
  Receipt Date: 20250509
  Transmission Date: 20250717
  Serious: Yes (Hospitalization, Other)
  Sender: ZYDUS PHARM
  Company Number: US-CADILA HEALTHCARE LIMITED-US-ZYDUS-123224

PATIENT

DRUGS (1)
  1. NAPROXEN [Suspect]
     Active Substance: NAPROXEN
     Indication: Fibromyalgia
     Route: 065

REACTIONS (7)
  - Gastric fistula [Unknown]
  - Pericarditis [Unknown]
  - Pneumopericardium [Unknown]
  - Melaena [Unknown]
  - Anastomotic ulcer [Unknown]
  - Intentional overdose [Unknown]
  - Intentional product misuse [Unknown]
